FAERS Safety Report 21581274 (Version 2)
Quarter: 2022Q4

REPORT INFORMATION
  Report Type: Report from Study
  Country: CA (occurrence: CA)
  Receive Date: 20221111
  Receipt Date: 20221115
  Transmission Date: 20230112
  Serious: Yes (Other)
  Sender: FDA-Public Use
  Company Number: CA-ABBVIE-4193686

PATIENT
  Age: 77 Year
  Sex: Male

DRUGS (1)
  1. SKYRIZI [Suspect]
     Active Substance: RISANKIZUMAB-RZAA
     Indication: Psoriasis
     Route: 058
     Dates: start: 20201126

REACTIONS (2)
  - Cardiac failure [Unknown]
  - Cough [Unknown]

NARRATIVE: CASE EVENT DATE: 20221104
